FAERS Safety Report 7459883-3 (Version None)
Quarter: 2011Q2

REPORT INFORMATION
  Report Type: 
  Country: None (occurrence: None)
  Receive Date: 20110505
  Receipt Date: 20110428
  Transmission Date: 20111010
  Serious: Yes (Death, Hospitalization, Other)
  Sender: FDA-Public Use
  Company Number: US-PFIZER INC-2011073915

PATIENT
  Sex: Male

DRUGS (8)
  1. LIPITOR [Concomitant]
  2. REVATIO [Suspect]
     Indication: COR PULMONALE CHRONIC
  3. FLOLAN [Concomitant]
  4. ACETYLSALICYLIC ACID [Concomitant]
  5. REVATIO [Suspect]
     Indication: PULMONARY ARTERIAL HYPERTENSION
     Dosage: 20 MG, 3X/DAY
     Route: 048
     Dates: start: 20100824, end: 20110208
  6. LASIX [Concomitant]
  7. PLAVIX [Concomitant]
     Dosage: UNK
  8. ZETIA [Concomitant]

REACTIONS (8)
  - PYREXIA [None]
  - LIVER FUNCTION TEST ABNORMAL [None]
  - THROMBOCYTOPENIA [None]
  - SEPSIS [None]
  - PULMONARY ARTERIAL HYPERTENSION [None]
  - SHOCK [None]
  - RENAL FAILURE ACUTE [None]
  - DEHYDRATION [None]
